FAERS Safety Report 12597613 (Version 1)
Quarter: 2016Q3

REPORT INFORMATION
  Report Type: Spontaneous
  Country: US (occurrence: None)
  Receive Date: 20160726
  Receipt Date: 20160726
  Transmission Date: 20161109
  Serious: Yes (Hospitalization)
  Sender: FDA-Public Use
  Company Number: None

PATIENT
  Age: 42 Year
  Sex: Male
  Weight: 72.4 kg

DRUGS (6)
  1. VINCRISTINE SULFATE. [Concomitant]
     Active Substance: VINCRISTINE SULFATE
     Dates: end: 20160616
  2. DOXORUBICIN HYDROCHLORIDE. [Suspect]
     Active Substance: DOXORUBICIN HYDROCHLORIDE
     Dates: end: 20160616
  3. ETOPOSIDE (VP-16) [Concomitant]
     Active Substance: ETOPOSIDE
     Dates: end: 20160616
  4. CYCLOPHOSPHAMIDE. [Suspect]
     Active Substance: CYCLOPHOSPHAMIDE
     Dates: end: 20160617
  5. PREDNISONE. [Concomitant]
     Active Substance: PREDNISONE
     Dates: end: 20160617
  6. RITUXIMAB (MOAB C2B8 ANTI CD20, CHIMERIC) [Concomitant]
     Active Substance: RITUXIMAB
     Dates: end: 20160613

REACTIONS (3)
  - Parainfluenzae virus infection [None]
  - Anaemia [None]
  - Febrile neutropenia [None]

NARRATIVE: CASE EVENT DATE: 20160623
